FAERS Safety Report 26047179 (Version 1)
Quarter: 2025Q4

REPORT INFORMATION
  Report Type: Spontaneous
  Country: US (occurrence: US)
  Receive Date: 20251114
  Receipt Date: 20251114
  Transmission Date: 20260118
  Serious: Yes (Other)
  Sender: COOPERSURGICAL
  Company Number: US-COOPERSURGICAL, INC.-2025CPS007834

PATIENT
  Age: 26 Year
  Sex: Female
  Weight: 88.435 kg

DRUGS (1)
  1. PARAGARD T 380A [Suspect]
     Active Substance: COPPER
     Indication: Contraception
     Dosage: UNK
     Route: 015
     Dates: start: 20140902

REACTIONS (20)
  - Surgery [Recovered/Resolved]
  - Device breakage [Not Recovered/Not Resolved]
  - Foreign body in reproductive tract [Not Recovered/Not Resolved]
  - Complication of device removal [Not Recovered/Not Resolved]
  - Embedded device [Not Recovered/Not Resolved]
  - Procedural pain [Recovered/Resolved]
  - Emotional distress [Unknown]
  - Premenstrual syndrome [Unknown]
  - Anxiety [Unknown]
  - Presyncope [Recovered/Resolved]
  - Heavy menstrual bleeding [Recovered/Resolved]
  - Abnormal uterine bleeding [Unknown]
  - Muscle spasms [Recovered/Resolved]
  - Pain [Recovered/Resolved]
  - Vaginal discharge [Recovered/Resolved]
  - Intermenstrual bleeding [Recovered/Resolved]
  - Discomfort [Recovered/Resolved]
  - Dysmenorrhoea [Unknown]
  - Menstruation irregular [Recovered/Resolved]
  - Vaginal infection [Recovered/Resolved]

NARRATIVE: CASE EVENT DATE: 20140901
